FAERS Safety Report 6381851-3 (Version None)
Quarter: 2009Q3

REPORT INFORMATION
  Report Type: 
  Country: None (occurrence: None)
  Receive Date: 20090925
  Receipt Date: 20090911
  Transmission Date: 20100115
  Serious: Yes (Hospitalization)
  Sender: FDA-Public Use
  Company Number: 440007M09USA

PATIENT
  Age: 57 Year
  Sex: Male
  Weight: 105 kg

DRUGS (8)
  1. ZORBTIVE [Suspect]
     Indication: SHORT-BOWEL SYNDROME
     Dates: start: 20090201, end: 20090401
  2. REMICADE [Suspect]
     Indication: CROHN'S DISEASE
     Dosage: INTRAVENOUS; 5 MG/KG, INTRAVENOUS; 5 MG/KG, INTRAVENOUS; 10 MG/KG, INTRAVENOUS
     Route: 042
     Dates: start: 19990617, end: 19990617
  3. REMICADE [Suspect]
     Indication: CROHN'S DISEASE
     Dosage: INTRAVENOUS; 5 MG/KG, INTRAVENOUS; 5 MG/KG, INTRAVENOUS; 10 MG/KG, INTRAVENOUS
     Route: 042
     Dates: start: 19991116
  4. REMICADE [Suspect]
     Indication: CROHN'S DISEASE
     Dosage: INTRAVENOUS; 5 MG/KG, INTRAVENOUS; 5 MG/KG, INTRAVENOUS; 10 MG/KG, INTRAVENOUS
     Route: 042
     Dates: start: 20010118
  5. REMICADE [Suspect]
     Indication: CROHN'S DISEASE
     Dosage: INTRAVENOUS; 5 MG/KG, INTRAVENOUS; 5 MG/KG, INTRAVENOUS; 10 MG/KG, INTRAVENOUS
     Route: 042
     Dates: start: 20010806
  6. VITAMIN B12 [Suspect]
     Indication: CROHN'S DISEASE
  7. ADALIMUMAB (ADALIMUMAB) [Suspect]
     Indication: CROHN'S DISEASE
  8. PREVACID [Suspect]
     Indication: CROHN'S DISEASE

REACTIONS (11)
  - ANGINA PECTORIS [None]
  - DIZZINESS [None]
  - ELECTROCARDIOGRAM CHANGE [None]
  - HEADACHE [None]
  - HYPERGLYCAEMIA [None]
  - JOINT STIFFNESS [None]
  - JOINT SWELLING [None]
  - NEPHROLITHIASIS [None]
  - OEDEMA PERIPHERAL [None]
  - RENAL FAILURE [None]
  - VERTIGO [None]
